FAERS Safety Report 19089577 (Version 3)
Quarter: 2021Q2

REPORT INFORMATION
  Report Type: Spontaneous
  Country: US (occurrence: US)
  Receive Date: 20210403
  Receipt Date: 20210531
  Transmission Date: 20210717
  Serious: Yes (Other)
  Sender: FDA-Public Use
  Company Number: US-CELGENEUS-USA-20210307455

PATIENT
  Age: 80 Year
  Sex: Male

DRUGS (2)
  1. POMALYST [Suspect]
     Active Substance: POMALIDOMIDE
     Dosage: 3 MILLIGRAM
     Route: 048
     Dates: start: 202104
  2. POMALYST [Suspect]
     Active Substance: POMALIDOMIDE
     Indication: KAPOSI^S SARCOMA
     Dosage: 4 MILLIGRAM
     Route: 048
     Dates: start: 20210226

REACTIONS (8)
  - Hypoaesthesia oral [Not Recovered/Not Resolved]
  - Fatigue [Not Recovered/Not Resolved]
  - Lip swelling [Unknown]
  - Tongue discomfort [Not Recovered/Not Resolved]
  - Burning sensation [Not Recovered/Not Resolved]
  - Neuropathy peripheral [Not Recovered/Not Resolved]
  - Paraesthesia oral [Unknown]
  - Rash [Unknown]

NARRATIVE: CASE EVENT DATE: 2021
